FAERS Safety Report 9260730 (Version 1)
Quarter: 2013Q2

REPORT INFORMATION
  Report Type: Spontaneous
  Country: FR (occurrence: FR)
  Receive Date: 20130429
  Receipt Date: 20130429
  Transmission Date: 20140414
  Serious: Yes (Other)
  Sender: FDA-Public Use
  Company Number: FR-ELI_LILLY_AND_COMPANY-FR201304004765

PATIENT
  Age: 63 Year
  Sex: Male

DRUGS (2)
  1. CYMBALTA [Suspect]
     Dosage: 90 MG, UNK
  2. CYMBALTA [Suspect]
     Dosage: 120 MG, UNK

REACTIONS (1)
  - Cardiac failure [Unknown]
